FAERS Safety Report 17098486 (Version 3)
Quarter: 2019Q4

REPORT INFORMATION
  Report Type: Report from Study
  Country: US (occurrence: US)
  Receive Date: 20191202
  Receipt Date: 20191226
  Transmission Date: 20200122
  Serious: No
  Sender: FDA-Public Use
  Company Number: NVSC2019US054833

PATIENT
  Sex: Female

DRUGS (1)
  1. MEKINIST [Suspect]
     Active Substance: TRAMETINIB DIMETHYL SULFOXIDE
     Indication: MALIGNANT MELANOMA
     Dosage: 2 MG, QD
     Route: 048
     Dates: start: 20191114

REACTIONS (7)
  - Rash [Recovering/Resolving]
  - Ageusia [Unknown]
  - Skin discolouration [Recovering/Resolving]
  - Pyrexia [Unknown]
  - Acne [Unknown]
  - Skin haemorrhage [Recovering/Resolving]
  - Sensitive skin [Recovering/Resolving]
